FAERS Safety Report 18505018 (Version 1)
Quarter: 2020Q4

REPORT INFORMATION
  Report Type: Spontaneous
  Country: CA (occurrence: CA)
  Receive Date: 20201115
  Receipt Date: 20201115
  Transmission Date: 20210114
  Serious: Yes (Hospitalization, Other)
  Sender: FDA-Public Use
  Company Number: CA-JNJFOC-20201119897

PATIENT
  Age: 20 Year
  Sex: Female

DRUGS (3)
  1. PREDNISONE. [Concomitant]
     Active Substance: PREDNISONE
     Route: 042
  2. IRON [Concomitant]
     Active Substance: IRON
     Route: 042
  3. INFLIXIMAB, RECOMBINANT [Suspect]
     Active Substance: INFLIXIMAB
     Indication: CROHN^S DISEASE
     Route: 042

REACTIONS (9)
  - Weight increased [Unknown]
  - Anaemia [Unknown]
  - Migraine [Unknown]
  - Crohn^s disease [Unknown]
  - Constipation [Unknown]
  - Vomiting [Unknown]
  - Abdominal pain [Unknown]
  - Intentional product use issue [Unknown]
  - Off label use [Unknown]
